FAERS Safety Report 17003102 (Version 1)
Quarter: 2019Q4

REPORT INFORMATION
  Report Type: Report from Study
  Country: US (occurrence: US)
  Receive Date: 20191107
  Receipt Date: 20191107
  Transmission Date: 20200122
  Serious: Yes (Other)
  Sender: FDA-Public Use
  Company Number: US-EMD SERONO-9126057

PATIENT
  Sex: Male

DRUGS (1)
  1. SEROSTIM [Suspect]
     Active Substance: SOMATROPIN
     Indication: CACHEXIA
     Dosage: MULTI DOSE 7-VIAL PACK
     Route: 058
     Dates: start: 20181015

REACTIONS (4)
  - Fatigue [Unknown]
  - Malaise [Unknown]
  - Rectal haemorrhage [Unknown]
  - Night sweats [Unknown]
